FAERS Safety Report 5588364-7 (Version None)
Quarter: 2008Q1

REPORT INFORMATION
  Report Type: 
  Country: None (occurrence: None)
  Receive Date: 20080111
  Receipt Date: 20071113
  Transmission Date: 20080703
  Serious: No
  Sender: FDA-Public Use
  Company Number: A0686924A

PATIENT
  Age: 57 Year
  Sex: Female
  Weight: 57.3 kg

DRUGS (5)
  1. TYKERB [Suspect]
     Dosage: 4TAB IN THE MORNING
     Route: 048
     Dates: start: 20070901
  2. LAMICTAL [Suspect]
     Dosage: 225MG PER DAY
     Route: 048
     Dates: start: 20000101
  3. LORAZEPAM [Concomitant]
  4. DECADRON [Concomitant]
  5. PHENOBARBITAL TAB [Concomitant]

REACTIONS (6)
  - DIZZINESS [None]
  - DYSPEPSIA [None]
  - GLOSSODYNIA [None]
  - NAIL DISORDER [None]
  - ONYCHOMYCOSIS [None]
  - THROAT IRRITATION [None]
